FAERS Safety Report 5249130-5 (Version None)
Quarter: 2007Q1

REPORT INFORMATION
  Report Type: 
  Country: None (occurrence: None)
  Receive Date: 20070228
  Receipt Date: 20070221
  Transmission Date: 20070707
  Serious: Yes (Hospitalization)
  Sender: FDA-Public Use
  Company Number: JP-JNJFOC-20060905905

PATIENT
  Sex: Female
  Weight: 49 kg

DRUGS (21)
  1. REMICADE [Suspect]
  2. REMICADE [Suspect]
  3. REMICADE [Suspect]
     Indication: RHEUMATOID ARTHRITIS
  4. RHEUMATREX [Suspect]
     Route: 048
  5. RHEUMATREX [Suspect]
     Route: 048
  6. RHEUMATREX [Suspect]
     Route: 048
  7. RHEUMATREX [Suspect]
     Indication: RHEUMATOID ARTHRITIS
     Route: 048
  8. VOLTAREN [Suspect]
     Indication: RHEUMATOID ARTHRITIS
     Route: 054
  9. LOXONIN [Suspect]
     Indication: RHEUMATOID ARTHRITIS
     Route: 048
  10. FOLIAMIN [Suspect]
     Route: 048
  11. FOLIAMIN [Suspect]
     Indication: LIVER DISORDER
     Route: 048
  12. BASEN [Suspect]
     Route: 048
  13. BASEN [Suspect]
     Indication: DIABETES MELLITUS
     Route: 048
  14. ACINON [Suspect]
     Indication: PROPHYLAXIS AGAINST GASTROINTESTINAL ULCER
  15. PREDNISOLONE [Suspect]
     Indication: NEPHROTIC SYNDROME
     Route: 048
  16. PREDNISOLONE [Suspect]
     Indication: RHEUMATOID ARTHRITIS
     Route: 048
  17. SHIOSOL [Concomitant]
     Route: 030
  18. SHIOSOL [Concomitant]
     Indication: RHEUMATOID ARTHRITIS
     Route: 030
  19. RIMATIL [Concomitant]
     Indication: RHEUMATOID ARTHRITIS
     Route: 048
  20. SULFASALAZINE [Concomitant]
     Indication: RHEUMATOID ARTHRITIS
     Route: 048
  21. ALTAT [Concomitant]
     Indication: PROPHYLAXIS AGAINST GASTROINTESTINAL ULCER
     Route: 048

REACTIONS (1)
  - NEPHROTIC SYNDROME [None]
